FAERS Safety Report 16556280 (Version 1)
Quarter: 2019Q3

REPORT INFORMATION
  Report Type: Other
  Country: KR (occurrence: KR)
  Receive Date: 20190710
  Receipt Date: 20190710
  Transmission Date: 20191004
  Serious: Yes (Death)
  Sender: FDA-Public Use
  Company Number: KR-AGG-12-2017-1937

PATIENT

DRUGS (1)
  1. AGGRASTAT [Suspect]
     Active Substance: TIROFIBAN HYDROCHLORIDE
     Indication: ANTIPLATELET THERAPY
     Route: 042

REACTIONS (1)
  - Brain oedema [Fatal]
